FAERS Safety Report 8140354-6 (Version None)
Quarter: 2012Q1

REPORT INFORMATION
  Report Type: 
  Country: None (occurrence: None)
  Receive Date: 20120216
  Receipt Date: 20120210
  Transmission Date: 20120608
  Serious: No
  Sender: FDA-Public Use
  Company Number: US-PFIZER INC-2012038102

PATIENT
  Sex: Male

DRUGS (3)
  1. OXYCODONE [Concomitant]
     Dosage: 10 MG, UNK
     Route: 048
  2. SUTENT [Suspect]
     Dosage: 37.5 MG, 1X/DAY (3 CAPSULES)
     Route: 048
  3. OMEPRAZOLE [Concomitant]
     Dosage: 20 MG, UNK
     Route: 048

REACTIONS (1)
  - HYPERTENSION [None]
